FAERS Safety Report 7201992-8 (Version None)
Quarter: 2010Q4

REPORT INFORMATION
  Report Type: 
  Country: None (occurrence: None)
  Receive Date: 20101215
  Receipt Date: 20101130
  Transmission Date: 20110411
  Serious: Yes (Congenital Anomaly)
  Sender: FDA-Public Use
  Company Number: 2007002086

PATIENT
  Sex: Male
  Weight: 3 kg

DRUGS (3)
  1. ERLOTINIB HYDROCHLORIDE [Suspect]
     Indication: NON-SMALL CELL LUNG CANCER METASTATIC
     Dosage: TRANSPLACENTAL
     Route: 064
  2. ERLOTINIB HYDROCHLORIDE [Suspect]
     Indication: NON-SMALL CELL LUNG CANCER METASTATIC
     Dosage: TRANSPLACENTAL
     Route: 064
  3. BEVACIZUMAB [Suspect]
     Indication: NON-SMALL CELL LUNG CANCER
     Dosage: TRANSPLACENTAL
     Route: 064

REACTIONS (3)
  - ADACTYLY [None]
  - PATERNAL DRUGS AFFECTING FOETUS [None]
  - SYNDACTYLY [None]
